FAERS Safety Report 15829327 (Version 1)
Quarter: 2019Q1

REPORT INFORMATION
  Report Type: Spontaneous
  Country: US (occurrence: US)
  Receive Date: 20190115
  Receipt Date: 20190115
  Transmission Date: 20190417
  Serious: No
  Sender: FDA-Public Use
  Company Number: US-ALLERGAN-1857139US

PATIENT
  Sex: Male

DRUGS (1)
  1. RESTASIS [Suspect]
     Active Substance: CYCLOSPORINE
     Indication: DRY EYE
     Dosage: ACTUAL: THE PATIENT GOT 2 DROPS IN HIS RIGHT THE FIRST TIME HE ADMINISTERED THE PRODUCT
     Route: 047
     Dates: start: 20181210

REACTIONS (2)
  - Incorrect dose administered [Unknown]
  - Eye pain [Recovering/Resolving]
